FAERS Safety Report 18007058 (Version 9)
Quarter: 2024Q1

REPORT INFORMATION
  Report Type: Spontaneous
  Country: US (occurrence: US)
  Receive Date: 20200710
  Receipt Date: 20240216
  Transmission Date: 20240410
  Serious: Yes (Other)
  Sender: FDA-Public Use
  Company Number: US-PFIZER INC-2020141872

PATIENT
  Age: 72 Year
  Sex: Female
  Weight: 90.72 kg

DRUGS (3)
  1. XELJANZ [Suspect]
     Active Substance: TOFACITINIB CITRATE
     Indication: Rheumatoid arthritis
     Dosage: 5 MG
     Route: 048
  2. XELJANZ [Suspect]
     Active Substance: TOFACITINIB CITRATE
     Indication: Osteoporosis
     Dosage: 5 MG, 2X/DAY (MORNING AND NIGHT)
     Route: 048
     Dates: start: 202110
  3. XELJANZ [Suspect]
     Active Substance: TOFACITINIB CITRATE
     Indication: Arthritis
     Dosage: 5 MG, DAILY (QD)
     Route: 048

REACTIONS (11)
  - Rheumatoid arthritis [Unknown]
  - Bone disorder [Unknown]
  - Pain [Unknown]
  - Illness [Unknown]
  - Crying [Unknown]
  - Gait disturbance [Unknown]
  - Arthralgia [Not Recovered/Not Resolved]
  - Pain in extremity [Unknown]
  - Product prescribing error [Unknown]
  - Loss of personal independence in daily activities [Unknown]
  - Joint range of motion decreased [Unknown]
